FAERS Safety Report 7897181-4 (Version None)
Quarter: 2011Q4

REPORT INFORMATION
  Report Type: 
  Country: None (occurrence: None)
  Receive Date: 20111104
  Receipt Date: 20111104
  Transmission Date: 20120403
  Serious: Yes (Hospitalization)
  Sender: FDA-Public Use
  Company Number: None

PATIENT
  Age: 76 Year
  Sex: Female
  Weight: 61.2356 kg

DRUGS (7)
  1. LEVOTHYROXINE SODIUM [Concomitant]
  2. PRILOSEC [Concomitant]
  3. ASPIRIN [Concomitant]
  4. IRON SUPPLEMENT [Concomitant]
  5. LISINOPRIL [Concomitant]
  6. FRESOLIMUMAB GC1008 [Suspect]
     Indication: SCLERODERMA
     Dosage: 1 MG/KG 1 OF 2 DOSES
     Dates: start: 20110913
  7. HYDROCHLOROTHIAZIDE [Concomitant]

REACTIONS (1)
  - HAEMOGLOBIN DECREASED [None]
